FAERS Safety Report 25979349 (Version 1)
Quarter: 2025Q4

REPORT INFORMATION
  Report Type: Spontaneous
  Country: EU (occurrence: EU)
  Receive Date: 20251030
  Receipt Date: 20251030
  Transmission Date: 20260117
  Serious: Yes (Other)
  Sender: RANBAXY
  Company Number: EU-AFSSAPS-AVCN2025000502

PATIENT
  Age: 68 Year
  Sex: Male

DRUGS (5)
  1. VENLAFAXINE [Suspect]
     Active Substance: VENLAFAXINE HYDROCHLORIDE
     Indication: Product used for unknown indication
     Dosage: FROM 37.5 MG TO 300 MG / DAY
     Route: 048
     Dates: start: 202406
  2. QUETIAPINE [Suspect]
     Active Substance: QUETIAPINE
     Indication: Product used for unknown indication
     Dosage: FROM 50 MG TO 300 MG/DAY
     Route: 048
     Dates: start: 202406
  3. TERALITHE [Suspect]
     Active Substance: LITHIUM CARBONATE
     Indication: Product used for unknown indication
     Dosage: FROM 400 MG LP TO 1000 MG LI/DAY
     Route: 048
     Dates: start: 202406
  4. DIAZEPAM [Suspect]
     Active Substance: DIAZEPAM
     Indication: Product used for unknown indication
     Dosage: UP TO 30 MG/DAY
     Route: 048
     Dates: start: 202406
  5. BROMAZEPAM [Suspect]
     Active Substance: BROMAZEPAM
     Indication: Product used for unknown indication
     Dosage: UP TO 12 MG/DAY
     Route: 048
     Dates: start: 202406

REACTIONS (2)
  - Drug abuse [Not Recovered/Not Resolved]
  - Pharmaceutical nomadism [Not Recovered/Not Resolved]

NARRATIVE: CASE EVENT DATE: 20240601
